FAERS Safety Report 6411078-8 (Version None)
Quarter: 2009Q4

REPORT INFORMATION
  Report Type: 
  Country: None (occurrence: None)
  Receive Date: 20091022
  Receipt Date: 20091019
  Transmission Date: 20100525
  Serious: Yes (Hospitalization)
  Sender: FDA-Public Use
  Company Number: US-GENENTECH-220668

PATIENT
  Sex: Female
  Weight: 55 kg

DRUGS (3)
  1. BEVACIZUMAB [Suspect]
     Indication: ADENOCARCINOMA PANCREAS
     Dosage: 10 MG/M2, Q28D
     Route: 042
     Dates: start: 20051103
  2. GEMCITABINE [Suspect]
     Indication: ADENOCARCINOMA PANCREAS
     Dosage: 1000 MG/M2, Q28D
     Route: 042
     Dates: start: 20051103
  3. OXALIPLATIN [Suspect]
     Indication: ADENOCARCINOMA PANCREAS
     Dosage: 100 MG/M2, Q28D
     Route: 042
     Dates: start: 20051103

REACTIONS (9)
  - FATIGUE [None]
  - GASTROINTESTINAL HAEMORRHAGE [None]
  - HYPOALBUMINAEMIA [None]
  - HYPOKALAEMIA [None]
  - HYPONATRAEMIA [None]
  - INFECTION [None]
  - LYMPHOPENIA [None]
  - PNEUMONIA ASPIRATION [None]
  - SEPTIC SHOCK [None]
